FAERS Safety Report 13947778 (Version 1)
Quarter: 2017Q3

REPORT INFORMATION
  Report Type: Spontaneous
  Country: SE (occurrence: SE)
  Receive Date: 20170908
  Receipt Date: 20170908
  Transmission Date: 20171128
  Serious: Yes (Disabling)
  Sender: FDA-Public Use
  Company Number: SE-ROCHE-1989589

PATIENT
  Age: 71 Year
  Sex: Male

DRUGS (2)
  1. MABTHERA [Suspect]
     Active Substance: RITUXIMAB
     Indication: WALDENSTROM^S MACROGLOBULINAEMIA
     Dosage: MOST RECENT DOSE: DEC/2016
     Route: 042
     Dates: start: 20161124
  2. BENDAMUSTINA [Concomitant]
     Active Substance: BENDAMUSTINE

REACTIONS (1)
  - Demyelinating polyneuropathy [Recovered/Resolved with Sequelae]

NARRATIVE: CASE EVENT DATE: 20161219
